FAERS Safety Report 16257967 (Version 2)
Quarter: 2019Q2

REPORT INFORMATION
  Report Type: Spontaneous
  Country: IT (occurrence: IT)
  Receive Date: 20190430
  Receipt Date: 20190502
  Transmission Date: 20190711
  Serious: Yes (Other)
  Sender: FDA-Public Use
  Company Number: IT-TAKEDA-2019TUS024960

PATIENT
  Age: 60 Year
  Sex: Female

DRUGS (4)
  1. BORTEZOMIB. [Suspect]
     Active Substance: BORTEZOMIB
     Indication: PLASMA CELL MYELOMA
     Dosage: 2 MILLIGRAM/SQ. METER, 1/WEEK
     Route: 058
     Dates: start: 2015
  2. BORTEZOMIB. [Suspect]
     Active Substance: BORTEZOMIB
     Dosage: 8 MILLIGRAM/SQ. METER
     Route: 058
     Dates: start: 2015
  3. THALIDOMIDE [Suspect]
     Active Substance: THALIDOMIDE
     Dosage: 50 MILLIGRAM, QD
     Route: 048
     Dates: start: 2015
  4. THALIDOMIDE [Suspect]
     Active Substance: THALIDOMIDE
     Indication: PLASMA CELL MYELOMA
     Dosage: UNK
     Route: 048
     Dates: start: 2015

REACTIONS (18)
  - Decreased vibratory sense [Unknown]
  - Lhermitte^s sign [Unknown]
  - Hypokinesia [Unknown]
  - Peripheral sensory neuropathy [Unknown]
  - Myelopathy [Unknown]
  - Radiculopathy [Unknown]
  - Areflexia [Unknown]
  - Intervertebral disc degeneration [Unknown]
  - Spinal osteoarthritis [Unknown]
  - Romberg test positive [Unknown]
  - Ataxia [Unknown]
  - Paraesthesia [Unknown]
  - Sensory ganglionitis [Unknown]
  - Pain in extremity [Unknown]
  - Hypoaesthesia [Unknown]
  - Neurotoxicity [Unknown]
  - Posture abnormal [Not Recovered/Not Resolved]
  - Gait disturbance [Unknown]

NARRATIVE: CASE EVENT DATE: 2015
